FAERS Safety Report 24866930 (Version 1)
Quarter: 2025Q1

REPORT INFORMATION
  Report Type: Spontaneous
  Country: US (occurrence: US)
  Receive Date: 20250121
  Receipt Date: 20250121
  Transmission Date: 20250409
  Serious: Yes (Life-Threatening, Hospitalization, Other)
  Sender: SANOFI AVENTIS
  Company Number: US-SA-2025SA017616

PATIENT
  Age: 66 Year
  Sex: Female

DRUGS (12)
  1. REZUROCK [Suspect]
     Active Substance: BELUMOSUDIL
     Indication: Myelodysplastic syndrome
     Dosage: 200 MG, QD
     Route: 048
     Dates: start: 202408
  2. ALPRAZOLAM [Concomitant]
     Active Substance: ALPRAZOLAM
  3. DEXAMETHASONE [Concomitant]
     Active Substance: DEXAMETHASONE
  4. FUROSEMIDE [Concomitant]
     Active Substance: FUROSEMIDE
  5. HYDROCORTISONE [Concomitant]
     Active Substance: HYDROCORTISONE
  6. LEVETIRACETAM [Concomitant]
     Active Substance: LEVETIRACETAM
  7. LIDOCAINE [Concomitant]
     Active Substance: LIDOCAINE
  8. OXYCODONE [Concomitant]
     Active Substance: OXYCODONE
  9. OXYCONTIN [Concomitant]
     Active Substance: OXYCODONE HYDROCHLORIDE
  10. TRIAMCINOLONE [Concomitant]
     Active Substance: TRIAMCINOLONE
  11. HERBALS\TURMERIC [Concomitant]
     Active Substance: HERBALS\TURMERIC
  12. VALACYCLOVIR [Concomitant]
     Active Substance: VALACYCLOVIR HYDROCHLORIDE

REACTIONS (2)
  - Chronic graft versus host disease [Unknown]
  - Product use in unapproved indication [Unknown]

NARRATIVE: CASE EVENT DATE: 20240801
